FAERS Safety Report 17931048 (Version 2)
Quarter: 2020Q2

REPORT INFORMATION
  Report Type: Spontaneous
  Country: CZ (occurrence: CZ)
  Receive Date: 20200623
  Receipt Date: 20200625
  Transmission Date: 20200714
  Serious: Yes (Hospitalization)
  Sender: FDA-Public Use
  Company Number: NVSC2020CZ174882

PATIENT
  Sex: Female

DRUGS (1)
  1. AMOKSIKLAV [Suspect]
     Active Substance: AMOXICILLIN\CLAVULANATE POTASSIUM
     Indication: ESCHERICHIA INFECTION
     Dosage: UNK
     Route: 065

REACTIONS (8)
  - Pneumonia klebsiella [Unknown]
  - Suture rupture [Unknown]
  - Deep vein thrombosis [Not Recovered/Not Resolved]
  - Pain in extremity [Unknown]
  - Diabetes mellitus inadequate control [Unknown]
  - Pseudomonas infection [Unknown]
  - Escherichia infection [Unknown]
  - Renal impairment [Unknown]
